FAERS Safety Report 14869022 (Version 10)
Quarter: 2019Q2

REPORT INFORMATION
  Report Type: Spontaneous
  Country: US (occurrence: US)
  Receive Date: 20180509
  Receipt Date: 20190409
  Transmission Date: 20190711
  Serious: Yes (Congenital Anomaly, Other)
  Sender: FDA-Public Use
  Company Number: PHEH2018US017093

PATIENT
  Sex: Female

DRUGS (2)
  1. ZOFRAN [Suspect]
     Active Substance: ONDANSETRON HYDROCHLORIDE
     Indication: FOETAL EXPOSURE DURING PREGNANCY
     Dosage: MOTHER DOSE: 06 MG PER 03 ML, Q6H
     Route: 064
  2. ZOFRAN [Suspect]
     Active Substance: ONDANSETRON HYDROCHLORIDE
     Indication: FOETAL EXPOSURE DURING PREGNANCY
     Dosage: MOTHER DOSE: 04 MG, Q6H
     Route: 064

REACTIONS (57)
  - Left-to-right cardiac shunt [Unknown]
  - Dizziness [Unknown]
  - Abdominal pain [Unknown]
  - Acute sinusitis [Unknown]
  - Neck pain [Unknown]
  - Right atrial enlargement [Unknown]
  - Congenital tricuspid valve incompetence [Unknown]
  - Atrial septal defect [Unknown]
  - Bundle branch block right [Unknown]
  - Pneumonia [Unknown]
  - Vomiting [Unknown]
  - Dehydration [Unknown]
  - Haematoma [Unknown]
  - Pulmonary artery stenosis congenital [Unknown]
  - Right ventricular hypertrophy [Unknown]
  - Dyspnoea [Unknown]
  - Upper respiratory tract infection [Unknown]
  - Depression [Unknown]
  - Pulmonary valve stenosis congenital [Unknown]
  - Heart disease congenital [Unknown]
  - Atrioventricular block first degree [Unknown]
  - Bronchitis mycoplasmal [Unknown]
  - Speech disorder [Unknown]
  - Otitis media [Unknown]
  - Pulmonary valve incompetence [Unknown]
  - Right atrial dilatation [Unknown]
  - Myringitis [Unknown]
  - Oropharyngeal pain [Unknown]
  - Sinus bradycardia [Unknown]
  - Diarrhoea [Unknown]
  - Pain in extremity [Unknown]
  - Patent ductus arteriosus [Unknown]
  - Ventricular septal defect [Unknown]
  - Lower respiratory tract infection [Unknown]
  - Pyrexia [Unknown]
  - Cognitive disorder [Unknown]
  - Bronchitis viral [Unknown]
  - Cardiac murmur [Unknown]
  - Fatigue [Unknown]
  - Cyanosis neonatal [Unknown]
  - Foetal exposure during pregnancy [Unknown]
  - Ear infection [Unknown]
  - Soft tissue injury [Unknown]
  - Cardiomegaly [Unknown]
  - Viral infection [Unknown]
  - Anxiety [Unknown]
  - Fallot^s tetralogy [Unknown]
  - Right aortic arch [Unknown]
  - Right ventricular enlargement [Unknown]
  - Bradycardia neonatal [Unknown]
  - Right ventricular dilatation [Unknown]
  - Cough [Unknown]
  - Learning disability [Unknown]
  - Decreased appetite [Unknown]
  - Lethargy [Unknown]
  - Swelling [Unknown]
  - Epistaxis [Unknown]
